FAERS Safety Report 20613897 (Version 2)
Quarter: 2022Q1

REPORT INFORMATION
  Report Type: Report from Study
  Country: AU (occurrence: None)
  Receive Date: 20220319
  Receipt Date: 20220323
  Transmission Date: 20220424
  Serious: Yes (Hospitalization)
  Sender: FDA-Public Use
  Company Number: AU-ROCHE-3049798

PATIENT
  Age: 62 Year
  Sex: Female
  Weight: 89.7 kg

DRUGS (23)
  1. BEVACIZUMAB [Suspect]
     Active Substance: BEVACIZUMAB
     Indication: Neoplasm malignant
     Route: 042
     Dates: start: 20220208, end: 20220301
  2. CISPLATIN [Suspect]
     Active Substance: CISPLATIN
     Indication: Neoplasm malignant
     Dosage: TWICE PER CYCLE
     Route: 042
     Dates: start: 20211123, end: 20220111
  3. GEMCITABINE [Suspect]
     Active Substance: GEMCITABINE
     Indication: Neoplasm malignant
     Route: 042
     Dates: start: 20211123, end: 20220111
  4. ERLOTINIB [Suspect]
     Active Substance: ERLOTINIB
     Indication: Neoplasm malignant
     Route: 048
     Dates: start: 20220208, end: 20220208
  5. IBUPROFEN [Concomitant]
     Active Substance: IBUPROFEN
     Route: 048
  6. IBUPROFEN [Concomitant]
     Active Substance: IBUPROFEN
     Dosage: 200- 400 MG
     Route: 048
     Dates: start: 20220218
  7. MELATONIN [Concomitant]
     Active Substance: MELATONIN
     Route: 048
  8. PANTOPRAZOLE [Concomitant]
     Active Substance: PANTOPRAZOLE
     Route: 048
  9. ACETAMINOPHEN [Concomitant]
     Active Substance: ACETAMINOPHEN
     Route: 048
  10. TELMISARTAN [Concomitant]
     Active Substance: TELMISARTAN
     Route: 048
     Dates: end: 20211225
  11. TELMISARTAN [Concomitant]
     Active Substance: TELMISARTAN
     Route: 048
     Dates: start: 20211226, end: 20220122
  12. TELMISARTAN [Concomitant]
     Active Substance: TELMISARTAN
     Route: 048
     Dates: start: 20220211, end: 20220308
  13. TELMISARTAN [Concomitant]
     Active Substance: TELMISARTAN
     Dosage: 80/12.5 MG
     Route: 048
     Dates: start: 20220309
  14. DOCUSATE SODIUM\SENNOSIDES A AND B [Concomitant]
     Active Substance: DOCUSATE SODIUM\SENNOSIDES A AND B
     Route: 048
     Dates: start: 20211126
  15. CANDESARTAN [Concomitant]
     Active Substance: CANDESARTAN
     Route: 048
     Dates: start: 20220123
  16. MINOCYCLINE [Concomitant]
     Active Substance: MINOCYCLINE HYDROCHLORIDE
     Route: 048
     Dates: start: 20220216, end: 20220217
  17. MINOCYCLINE [Concomitant]
     Active Substance: MINOCYCLINE HYDROCHLORIDE
     Route: 048
     Dates: start: 20220218, end: 20220308
  18. BETAMETHASONE DIPROPIONATE [Concomitant]
     Active Substance: BETAMETHASONE DIPROPIONATE
     Dosage: 4 APPLICATION
     Route: 061
     Dates: start: 20220216
  19. ZYRTEC [Concomitant]
     Active Substance: CETIRIZINE HYDROCHLORIDE
     Route: 048
     Dates: start: 20220218
  20. PREDNISOLONE [Concomitant]
     Active Substance: PREDNISOLONE
     Route: 048
     Dates: start: 20220222, end: 20220227
  21. PREDNISOLONE [Concomitant]
     Active Substance: PREDNISOLONE
     Route: 048
     Dates: start: 20220228, end: 20220308
  22. PREDNISOLONE [Concomitant]
     Active Substance: PREDNISOLONE
     Route: 048
     Dates: start: 20220309
  23. ENOXAPARIN [Concomitant]
     Active Substance: ENOXAPARIN
     Dosage: EVERY DAY
     Route: 058
     Dates: start: 20220310

REACTIONS (1)
  - Blood bilirubin increased [Not Recovered/Not Resolved]

NARRATIVE: CASE EVENT DATE: 20220308
